FAERS Safety Report 6483253-8 (Version None)
Quarter: 2009Q4

REPORT INFORMATION
  Report Type: 
  Country: None (occurrence: None)
  Receive Date: 20091209
  Receipt Date: 20091201
  Transmission Date: 20100525
  Serious: Yes (Hospitalization, Other)
  Sender: FDA-Public Use
  Company Number: CA-ELI_LILLY_AND_COMPANY-CA200911001736

PATIENT
  Age: 59 Year
  Sex: Female

DRUGS (9)
  1. FORTEO [Suspect]
     Indication: OSTEOPOROSIS
     Dosage: 20 UG, DAILY (1/D)
     Route: 058
     Dates: start: 20090729, end: 20091101
  2. FORTEO [Suspect]
     Dosage: 20 UG, DAILY (1/D)
     Route: 058
  3. PLAVIX [Concomitant]
     Dosage: 75 MG, UNK
  4. NITROGLYCERIN [Concomitant]
     Dosage: 0.4 MG, UNK
  5. NITROGLYCERIN [Concomitant]
     Dosage: 0.4 MG, UNK
  6. VITAMIN D [Concomitant]
     Dosage: 1000 U, UNK
  7. CALCIUM CARBONATE [Concomitant]
     Dosage: 1500 MG, UNK
  8. RAMIPRIL [Concomitant]
     Dosage: 2.5 MG, UNK
  9. HYDROMORPHONE HCL [Concomitant]
     Dosage: 15 MG, 2/D

REACTIONS (8)
  - BLOOD URINE PRESENT [None]
  - CONTUSION [None]
  - DYSURIA [None]
  - FALL [None]
  - HEAD INJURY [None]
  - HUMERUS FRACTURE [None]
  - UPPER LIMB FRACTURE [None]
  - URINE ODOUR ABNORMAL [None]
